FAERS Safety Report 10198852 (Version 1)
Quarter: 2014Q2

REPORT INFORMATION
  Report Type: Spontaneous
  Country: US (occurrence: None)
  Receive Date: 20140523
  Receipt Date: 20140523
  Transmission Date: 20141212
  Serious: No
  Sender: FDA-Public Use
  Company Number: None

PATIENT
  Age: 55 Year
  Sex: Female
  Weight: 91.63 kg

DRUGS (7)
  1. TRAMADOL HCL [Suspect]
     Indication: BACK PAIN
     Route: 048
     Dates: start: 20140505, end: 20140506
  2. TRAMADOL HCL [Suspect]
     Indication: ARTHRITIS
     Route: 048
     Dates: start: 20140505, end: 20140506
  3. TRAMADOL HCL [Suspect]
     Indication: ARTHRALGIA
     Route: 048
     Dates: start: 20140505, end: 20140506
  4. DICLOFENAC DR [Concomitant]
  5. OMEGA 3 FISH OIL (FISH, FLAXSEED, BORAGE OIL 3-6-9) [Concomitant]
  6. PROBIOTIC ACIDOPHILUS [Concomitant]
  7. ONE A DAY WOMEN^S FORMULA VITAMINS [Concomitant]

REACTIONS (11)
  - Nausea [None]
  - Dizziness [None]
  - Swelling face [None]
  - Dyspnoea [None]
  - Heart rate increased [None]
  - Respiratory rate increased [None]
  - Abdominal discomfort [None]
  - Feeling hot [None]
  - Hyperhidrosis [None]
  - Headache [None]
  - Abdominal pain upper [None]
